FAERS Safety Report 4365421-4 (Version None)
Quarter: 2004Q2

REPORT INFORMATION
  Report Type: 
  Country: None (occurrence: None)
  Receive Date: 20040520
  Receipt Date: 20030407
  Transmission Date: 20050107
  Serious: No
  Sender: FDA-Public Use
  Company Number: K200300616

PATIENT
  Age: 37 Year
  Sex: Male

DRUGS (1)
  1. BICILLIN C-R 900/300 [Suspect]
     Indication: SYPHILIS
     Dosage: 2,400,000 U, SINGLE, INTRAMUSCULAR
     Route: 030
     Dates: start: 20020610, end: 20020610

REACTIONS (1)
  - MEDICATION ERROR [None]
